FAERS Safety Report 8067923-6 (Version None)
Quarter: 2012Q1

REPORT INFORMATION
  Report Type: 
  Country: None (occurrence: None)
  Receive Date: 20120124
  Receipt Date: 20120109
  Transmission Date: 20120608
  Serious: Yes (Other)
  Sender: FDA-Public Use
  Company Number: CA-JNJFOC-20111110208

PATIENT
  Sex: Female
  Weight: 95 kg

DRUGS (1)
  1. REMICADE [Suspect]
     Indication: COLITIS ULCERATIVE
     Route: 042
     Dates: start: 20080812

REACTIONS (5)
  - DRUG EFFECT DECREASED [None]
  - ABORTION [None]
  - NAUSEA [None]
  - MATERNAL EXPOSURE DURING PREGNANCY [None]
  - HYPOPHAGIA [None]
